FAERS Safety Report 11919795 (Version 1)
Quarter: 2016Q1

REPORT INFORMATION
  Report Type: Spontaneous
  Country: US (occurrence: None)
  Receive Date: 20160114
  Receipt Date: 20160114
  Transmission Date: 20160526
  Serious: Yes (Disabling, Other)
  Sender: FDA-Public Use
  Company Number: None

PATIENT
  Age: 61 Year
  Sex: Male
  Weight: 108.86 kg

DRUGS (3)
  1. RISPERIDONE. [Suspect]
     Active Substance: RISPERIDONE
     Indication: SCHIZOPHRENIA
     Route: 048
     Dates: start: 20150801, end: 20151231
  2. ABILIFY [Concomitant]
     Active Substance: ARIPIPRAZOLE
  3. ONE A DAY FOR MEN VITAMIN [Concomitant]

REACTIONS (3)
  - Product substitution issue [None]
  - Condition aggravated [None]
  - Drug ineffective [None]

NARRATIVE: CASE EVENT DATE: 20150801
